FAERS Safety Report 7081632-1 (Version None)
Quarter: 2010Q4

REPORT INFORMATION
  Report Type: 
  Country: None (occurrence: None)
  Receive Date: 20101103
  Receipt Date: 20101022
  Transmission Date: 20110411
  Serious: Yes (Other)
  Sender: FDA-Public Use
  Company Number: PHHY2010FR71752

PATIENT
  Sex: Male

DRUGS (4)
  1. ACLASTA [Suspect]
     Indication: OSTEOPOROSIS
     Dosage: UNK
     Dates: start: 20101019
  2. GARDENAL [Concomitant]
     Dosage: 50 1 DF IN THE EVENING
  3. TOPIRAMATE [Concomitant]
     Dosage: 100 1 DF IN THE MORNING AND 1 DF IN THE EVENING
  4. URBANYL [Concomitant]
     Dosage: 5, 1 DF IN THE MORNING AND 1 DF IN THE EVENING

REACTIONS (1)
  - CONVULSION [None]
